FAERS Safety Report 4779364-5 (Version None)
Quarter: 2005Q3

REPORT INFORMATION
  Report Type: 
  Country: None (occurrence: None)
  Receive Date: 20050927
  Receipt Date: 20050711
  Transmission Date: 20060218
  Serious: Yes (Death)
  Sender: FDA-Public Use
  Company Number: JP-SOLVAY-00305002226

PATIENT
  Age: 29063 Day
  Sex: Female
  Weight: 43 kg

DRUGS (8)
  1. LUVOX [Suspect]
     Indication: DEPRESSION
     Dosage: DAILY DOSE: 50 MILLIGRAM(S)
     Route: 048
     Dates: start: 20050613, end: 20050624
  2. ALPRAZOLAM [Concomitant]
     Indication: ANXIETY DISORDER
     Dosage: DAILY DOSE: 1.2 MILLIGRAM(S)
     Route: 048
     Dates: start: 20050613, end: 20050620
  3. ALPRAZOLAM [Concomitant]
     Dosage: DAILY DOSE: 2.4 MILLIGRAM(S)
     Route: 048
     Dates: start: 20050621, end: 20050624
  4. BROTIZOLAM [Concomitant]
     Indication: INSOMNIA
     Dosage: DAILY DOSE: .25 MILLIGRAM(S)
     Route: 048
     Dates: start: 20050613, end: 20050624
  5. ARICEPT [Suspect]
     Indication: DEMENTIA ALZHEIMER'S TYPE
     Dosage: DAILY DOSE: 2.5 MILLIGRAM(S)
     Route: 048
     Dates: start: 20050613, end: 20050620
  6. ARICEPT [Suspect]
     Dosage: DAILY DOSE: 3 MILLIGRAM(S)
     Route: 048
     Dates: start: 20050621, end: 20050624
  7. TEGRETOL [Suspect]
     Indication: RESTLESSNESS
     Dosage: DAILY DOSE: 200 MILLIGRAM(S)
     Route: 048
     Dates: start: 20050613, end: 20050620
  8. TEGRETOL [Suspect]
     Dosage: DAILY DOSE: 400 MILLIGRAM(S)
     Route: 048
     Dates: start: 20050621, end: 20050624

REACTIONS (4)
  - NEUROLEPTIC MALIGNANT SYNDROME [None]
  - PLATELET COUNT DECREASED [None]
  - RENAL FAILURE ACUTE [None]
  - RHABDOMYOLYSIS [None]
